FAERS Safety Report 8184775-4 (Version None)
Quarter: 2012Q1

REPORT INFORMATION
  Report Type: 
  Country: None (occurrence: None)
  Receive Date: 20120305
  Receipt Date: 20120305
  Transmission Date: 20120608
  Serious: Yes (Other)
  Sender: FDA-Public Use
  Company Number: None

PATIENT
  Age: 0 Day
  Sex: Female
  Weight: 57.152 kg

DRUGS (1)
  1. LO LOESTRIN FE [Suspect]
     Indication: CONTRACEPTION
     Dosage: 1 PILL
     Dates: start: 20120212, end: 20120303

REACTIONS (4)
  - MENTAL IMPAIRMENT [None]
  - DEPRESSION [None]
  - HYPOAESTHESIA [None]
  - ANGER [None]
